FAERS Safety Report 6482250-6 (Version None)
Quarter: 2009Q4

REPORT INFORMATION
  Report Type: 
  Country: None (occurrence: None)
  Receive Date: 20091208
  Receipt Date: 20090506
  Transmission Date: 20100525
  Serious: No
  Sender: FDA-Public Use
  Company Number: US-AMGEN-KDL343272

PATIENT
  Sex: Female

DRUGS (4)
  1. ENBREL [Suspect]
     Indication: RHEUMATOID ARTHRITIS
     Route: 058
     Dates: start: 20080528
  2. ARAVA [Concomitant]
     Dates: start: 20080228
  3. PAMELOR [Concomitant]
     Dates: start: 20081101
  4. TRAMADOL HCL [Concomitant]
     Dates: start: 20080201

REACTIONS (1)
  - BODY TINEA [None]
